FAERS Safety Report 6212087-4 (Version None)
Quarter: 2009Q2

REPORT INFORMATION
  Report Type: 
  Country: None (occurrence: None)
  Receive Date: 20090602
  Receipt Date: 20090521
  Transmission Date: 20091009
  Serious: Yes (Hospitalization)
  Sender: FDA-Public Use
  Company Number: PHHY2009JP19927

PATIENT
  Sex: Male

DRUGS (3)
  1. DIOVAN T30230+TAB+HY [Suspect]
     Dosage: 40 MG DAILY
     Route: 048
     Dates: start: 20071020, end: 20071026
  2. CEROCRAL [Concomitant]
     Dosage: UNK
     Route: 048
     Dates: start: 20071020, end: 20071026
  3. SERMION [Concomitant]
     Dosage: UNK
     Route: 048
     Dates: start: 20071020, end: 20071026

REACTIONS (1)
  - CEREBRAL INFARCTION [None]
